FAERS Safety Report 4301404-8 (Version None)
Quarter: 2004Q1

REPORT INFORMATION
  Report Type: 
  Country: None (occurrence: None)
  Receive Date: 20040219
  Receipt Date: 20040204
  Transmission Date: 20041129
  Serious: Yes (Hospitalization)
  Sender: FDA-Public Use
  Company Number: 2004IM000244

PATIENT
  Age: 53 Year
  Sex: Male

DRUGS (4)
  1. ADVAFERON (A643_INTERFERON ALFACON-1) [Suspect]
     Indication: HEPATITIS C
     Dosage: 18 MU;QD;SUBCUTANEOUS
     Route: 058
     Dates: start: 20011219
  2. URSODEOXYCHOLIC ACID [Concomitant]
  3. STREPTOCOCCUS FAECALIS [Concomitant]
  4. TOUGHMAC-E (DIGESTIVE ENZYME  PREPARATIONS) [Concomitant]

REACTIONS (7)
  - ARTHRALGIA [None]
  - BLOOD GLUCOSE INCREASED [None]
  - DEPRESSED MOOD [None]
  - MALAISE [None]
  - POLYURIA [None]
  - PYREXIA [None]
  - URINE KETONE BODY PRESENT [None]
